FAERS Safety Report 18203613 (Version 1)
Quarter: 2020Q3

REPORT INFORMATION
  Report Type: Report from Study
  Country: ES (occurrence: ES)
  Receive Date: 20200827
  Receipt Date: 20200827
  Transmission Date: 20201103
  Serious: Yes (Hospitalization)
  Sender: FDA-Public Use
  Company Number: ES-MYLANLABS-2020M1073283

PATIENT
  Age: 62 Year
  Sex: Male
  Weight: 88.5 kg

DRUGS (17)
  1. MYCOPHENOLATE MOFETIL. [Suspect]
     Active Substance: MYCOPHENOLATE MOFETIL
     Indication: IMMUNOSUPPRESSION
     Dosage: 720 MG, QD
     Dates: start: 20200227, end: 20200407
  2. ENVARSUS XR [Suspect]
     Active Substance: TACROLIMUS
     Dosage: 7 MILLIGRAM, QD
     Route: 048
     Dates: start: 20200317, end: 20200402
  3. BISOPROLOL [Concomitant]
     Active Substance: BISOPROLOL
     Indication: HYPERTENSION
     Dosage: UNK
     Dates: start: 20200215
  4. DARBEPOETIN ALFA [Concomitant]
     Active Substance: DARBEPOETIN ALFA
     Indication: ANTICOAGULANT THERAPY
     Dosage: UNK
     Dates: start: 20200215, end: 20200317
  5. ENVARSUS XR [Suspect]
     Active Substance: TACROLIMUS
     Indication: PROPHYLAXIS AGAINST TRANSPLANT REJECTION
     Dosage: 13 MG, QD
     Route: 048
     Dates: start: 20200208, end: 20200302
  6. CORTICOSTEROID NOS [Suspect]
     Active Substance: CORTICOSTEROID NOS
     Dosage: 10 MILLIGRAM, QD
     Dates: start: 20200303, end: 20200401
  7. CORTICOSTEROID NOS [Suspect]
     Active Substance: CORTICOSTEROID NOS
     Indication: IMMUNOSUPPRESSION
     Dosage: 15 MG, QD
     Dates: start: 20200227, end: 20200302
  8. ENVARSUS XR [Suspect]
     Active Substance: TACROLIMUS
     Dosage: 9 MILLIGRAM, QD
     Route: 048
     Dates: start: 20200303, end: 20200316
  9. ENVARSUS XR [Suspect]
     Active Substance: TACROLIMUS
     Dosage: 5 MILLIGRAM, QD
     Route: 048
     Dates: start: 20200403
  10. CORTICOSTEROID NOS [Suspect]
     Active Substance: CORTICOSTEROID NOS
     Dosage: 7.5 GRAM
     Dates: start: 20200402
  11. ENVARSUS XR [Suspect]
     Active Substance: TACROLIMUS
     Dosage: 5 MILLIGRAM, QD
     Route: 048
     Dates: start: 20200218, end: 20200506
  12. AMLODIPINE [Concomitant]
     Active Substance: AMLODIPINE BESYLATE
     Indication: HYPERTENSION
     Dosage: UNK
  13. SULFAMETOXAZOL + TRIMETOPRIMA [Concomitant]
     Active Substance: SULFAMETHOXAZOLE\TRIMETHOPRIM
     Indication: BACTERIAL INFECTION
     Dosage: UNK
     Dates: start: 20200211
  14. BETAHISTINA                        /00141802/ [Concomitant]
     Indication: DIZZINESS
     Dosage: UNK
  15. VALGANCICLOVIR. [Concomitant]
     Active Substance: VALGANCICLOVIR
     Indication: CYTOMEGALOVIRUS INFECTION
     Dosage: UNK
     Dates: start: 20200215, end: 20200328
  16. MYCOPHENOLATE MOFETIL. [Suspect]
     Active Substance: MYCOPHENOLATE MOFETIL
     Dosage: 1440 MILLIGRAM, QD
     Dates: start: 20200208, end: 20200226
  17. ESOMEPRAZOLE. [Concomitant]
     Active Substance: ESOMEPRAZOLE MAGNESIUM
     Indication: GASTROOESOPHAGEAL REFLUX DISEASE
     Dosage: UNK
     Dates: start: 20200227

REACTIONS (2)
  - Chronic kidney disease [Recovered/Resolved]
  - Acute kidney injury [Not Recovered/Not Resolved]

NARRATIVE: CASE EVENT DATE: 20200401
